FAERS Safety Report 14471611 (Version 2)
Quarter: 2018Q1

REPORT INFORMATION
  Report Type: Spontaneous
  Country: US (occurrence: US)
  Receive Date: 20180131
  Receipt Date: 20180227
  Transmission Date: 20180509
  Serious: Yes (Other)
  Sender: FDA-Public Use
  Company Number: PHEH2018US003716

PATIENT
  Age: 31 Year
  Sex: Female

DRUGS (1)
  1. COSENTYX [Suspect]
     Active Substance: SECUKINUMAB
     Indication: PSORIASIS
     Dosage: 300 MG, QMO
     Route: 058
     Dates: start: 201606, end: 201707

REACTIONS (3)
  - Chronic myeloid leukaemia [Unknown]
  - Inappropriate schedule of drug administration [Unknown]
  - Leukocytosis [Unknown]

NARRATIVE: CASE EVENT DATE: 201606
